FAERS Safety Report 16772526 (Version 1)
Quarter: 2019Q3

REPORT INFORMATION
  Report Type: Spontaneous
  Country: US (occurrence: US)
  Receive Date: 20190715
  Receipt Date: 20190715
  Transmission Date: 20191005
  Serious: Yes (Other)
  Sender: FDA-Public Use
  Company Number: None

PATIENT
  Age: 73 Year
  Sex: Female

DRUGS (11)
  1. HYDROCORTISONE TOP CREAM [Concomitant]
  2. ADEMPAS [Suspect]
     Active Substance: RIOCIGUAT
     Indication: PULMONARY HYPERTENSION
     Dosage: ?          OTHER DOSE:0.5MG;?
     Route: 048
     Dates: start: 201803
  3. WARFARIN [Concomitant]
     Active Substance: WARFARIN
  4. STATIN [Concomitant]
     Active Substance: UNSPECIFIED INGREDIENT
  5. PANTOPROLOL [Concomitant]
  6. FAMOLIDINE [Concomitant]
  7. FERROUS SULFATE. [Concomitant]
     Active Substance: FERROUS SULFATE
  8. LOSARDAN [Concomitant]
  9. TROSPIUM [Concomitant]
     Active Substance: TROSPIUM
  10. ELINDAMYEIN [Concomitant]
  11. LEVOTHYROXINE. [Concomitant]
     Active Substance: LEVOTHYROXINE

REACTIONS (1)
  - Urinary tract infection [None]

NARRATIVE: CASE EVENT DATE: 20190623
